FAERS Safety Report 5499187-1 (Version None)
Quarter: 2007Q4

REPORT INFORMATION
  Report Type: 
  Country: None (occurrence: None)
  Receive Date: 20071026
  Receipt Date: 20071023
  Transmission Date: 20080405
  Serious: Yes (Death, Other)
  Sender: FDA-Public Use
  Company Number: JP-BRISTOL-MYERS SQUIBB COMPANY-13942529

PATIENT
  Age: 71 Year
  Sex: Male

DRUGS (3)
  1. CARBOPLATIN [Suspect]
     Indication: ADENOCARCINOMA
  2. DOCETAXEL [Suspect]
     Indication: ADENOCARCINOMA
  3. RADIOTHERAPY [Suspect]
     Indication: ADENOCARCINOMA
     Dosage: 1! DOSAGE FORM= 12 GRAY

REACTIONS (4)
  - ALOPECIA [None]
  - BONE MARROW FAILURE [None]
  - ENCEPHALOPATHY [None]
  - HYPERSENSITIVITY [None]
